FAERS Safety Report 8996803 (Version 1)
Quarter: 2012Q4

REPORT INFORMATION
  Report Type: Spontaneous
  Country: IT (occurrence: None)
  Receive Date: 20121220
  Receipt Date: 20121220
  Transmission Date: 20130627
  Serious: Yes (Hospitalization)
  Sender: FDA-Public Use
  Company Number: 2012-22286

PATIENT
  Age: 91 Year
  Sex: Female

DRUGS (7)
  1. SERTRALINE [Suspect]
     Indication: DEPRESSION
     Route: 048
     Dates: start: 20121204, end: 20121204
  2. MINIAS [Suspect]
     Indication: DEPRESSION
     Dosage: 25 drops daily, Oral
     Route: 048
     Dates: start: 20121013, end: 20121204
  3. LASIX /00032601/ (FUROSEMIDE) [Concomitant]
  4. VENITRIN (GLYCERYL TRINITRATE) [Concomitant]
  5. GLUCOBAY (ACARBOSE) [Concomitant]
  6. CARDIOASPIRIN (ACETYLSALICYLIC ACID) [Concomitant]
  7. LANSOPRAZOLE (LANSOPRAZOLE) [Concomitant]

REACTIONS (3)
  - Psychomotor retardation [None]
  - Sopor [None]
  - Toxicity to various agents [None]
